FAERS Safety Report 12660184 (Version 2)
Quarter: 2016Q3

REPORT INFORMATION
  Report Type: Spontaneous
  Country: DE (occurrence: DE)
  Receive Date: 20160817
  Receipt Date: 20160829
  Transmission Date: 20161109
  Serious: Yes (Other)
  Sender: FDA-Public Use
  Company Number: DE-JNJFOC-20160807675

PATIENT
  Age: 3 Decade
  Sex: Male

DRUGS (2)
  1. MINOXIDIL FOR MEN [Suspect]
     Active Substance: MINOXIDIL
     Route: 061
  2. MINOXIDIL FOR MEN [Suspect]
     Active Substance: MINOXIDIL
     Indication: ALOPECIA
     Route: 061
     Dates: start: 2016, end: 2016

REACTIONS (8)
  - Rash pustular [Unknown]
  - Blindness transient [Recovered/Resolved]
  - Pruritus [Unknown]
  - Application site pruritus [Unknown]
  - Erythema [Unknown]
  - Application site pustules [Unknown]
  - Dizziness [Recovered/Resolved]
  - Application site erythema [Unknown]

NARRATIVE: CASE EVENT DATE: 2016
